FAERS Safety Report 4747331-3 (Version None)
Quarter: 2005Q3

REPORT INFORMATION
  Report Type: 
  Country: None (occurrence: None)
  Receive Date: 20050817
  Receipt Date: 20050407
  Transmission Date: 20060218
  Serious: Yes (Hospitalization, Other)
  Sender: FDA-Public Use
  Company Number: US-MERCK-0504USA00994

PATIENT
  Age: 63 Year
  Sex: Male
  Weight: 87 kg

DRUGS (7)
  1. VIOXX [Suspect]
     Indication: BACK PAIN
     Route: 048
     Dates: start: 20010414, end: 20010501
  2. VIOXX [Suspect]
     Route: 048
     Dates: start: 20020225, end: 20020301
  3. VIOXX [Suspect]
     Route: 048
     Dates: start: 20020619, end: 20040601
  4. VIOXX [Suspect]
     Indication: RHEUMATOID ARTHRITIS
     Route: 048
     Dates: start: 20010414, end: 20010501
  5. VIOXX [Suspect]
     Route: 048
     Dates: start: 20020225, end: 20020301
  6. VIOXX [Suspect]
     Route: 048
     Dates: start: 20020619, end: 20040601
  7. PROPOXYPHENE NAPSYLATE [Concomitant]
     Indication: PAIN
     Route: 048
     Dates: start: 20010108

REACTIONS (10)
  - ASTHMA [None]
  - BACK INJURY [None]
  - BLOOD CHOLESTEROL INCREASED [None]
  - BLOOD PRESSURE INCREASED [None]
  - DEHYDRATION [None]
  - FOOT FRACTURE [None]
  - GASTROOESOPHAGEAL REFLUX DISEASE [None]
  - JOINT INJURY [None]
  - MYOCARDIAL INFARCTION [None]
  - ROAD TRAFFIC ACCIDENT [None]
